FAERS Safety Report 23393352 (Version 4)
Quarter: 2024Q3

REPORT INFORMATION
  Report Type: Spontaneous
  Country: US (occurrence: US)
  Receive Date: 20240111
  Receipt Date: 20240701
  Transmission Date: 20241017
  Serious: No
  Sender: UCB
  Company Number: US-UCBSA-2024000953

PATIENT
  Sex: Male

DRUGS (1)
  1. NAYZILAM [Suspect]
     Active Substance: MIDAZOLAM
     Indication: Epilepsy
     Dosage: 1 UNIT, 5MG/0.1ML
     Route: 045

REACTIONS (4)
  - Insomnia [Unknown]
  - Device issue [Unknown]
  - Product dose omission issue [Unknown]
  - Incorrect dose administered [Unknown]
